FAERS Safety Report 6477868-0 (Version None)
Quarter: 2009Q4

REPORT INFORMATION
  Report Type: 
  Country: None (occurrence: None)
  Receive Date: 20091207
  Receipt Date: 20091203
  Transmission Date: 20100525
  Serious: Yes (Hospitalization)
  Sender: FDA-Public Use
  Company Number: GXKR2009DE10876

PATIENT
  Age: 64 Year
  Sex: Female
  Weight: 74.9 kg

DRUGS (12)
  1. ALLOPURINOL (NGX) [Suspect]
     Indication: HYPERURICAEMIA
     Dosage: 50 MG, QD
     Route: 048
     Dates: start: 20090417, end: 20090903
  2. CELLCEPT [Suspect]
     Indication: RENAL TRANSPLANT
     Dosage: 1000 MG, BID
     Route: 048
     Dates: start: 20081101
  3. PROGRAF [Suspect]
     Indication: RENAL TRANSPLANT
     Dosage: 1.5-0-0.5
     Route: 048
     Dates: start: 20081101
  4. ACETYLSALICYLIC ACID [Concomitant]
     Indication: TACHYARRHYTHMIA
     Dosage: 100 MG, QD
     Route: 048
     Dates: start: 20081101, end: 20090902
  5. DECORTIN-H [Concomitant]
     Indication: RENAL TRANSPLANT
     Dosage: 5 MG, QD
     Route: 048
     Dates: start: 20081101
  6. EINSALPHA [Concomitant]
     Indication: CALCIUM DEFICIENCY
     Dosage: 0.5 MG, QD
     Route: 048
     Dates: start: 20081101
  7. HALCION [Concomitant]
     Indication: SLEEP DISORDER
     Dosage: UNK
     Route: 048
     Dates: start: 20090801, end: 20090817
  8. LANSOPRAZOLE [Concomitant]
     Indication: DYSPEPSIA
     Dosage: UNK
     Route: 048
     Dates: start: 20040101, end: 20080101
  9. METOHEXAL [Concomitant]
     Indication: HYPERTENSION
     Dosage: UNK
     Route: 048
     Dates: start: 20080501
  10. PANTOZOL [Concomitant]
     Indication: PROPHYLAXIS AGAINST GASTROINTESTINAL ULCER
     Dosage: UNK
     Route: 048
     Dates: start: 20070101
  11. PRESOMEN [Concomitant]
     Indication: MENOPAUSAL SYMPTOMS
     Dosage: UNK
     Route: 048
     Dates: start: 20030101, end: 20070101
  12. TORASEMIDE [Concomitant]
     Indication: HYPERTENSION
     Dosage: UNK
     Dates: start: 20081101

REACTIONS (2)
  - DIARRHOEA [None]
  - LIVER FUNCTION TEST ABNORMAL [None]
